FAERS Safety Report 8908277 (Version 2)
Quarter: 2012Q4

REPORT INFORMATION
  Report Type: 
  Country: JP (occurrence: JP)
  Receive Date: 20121114
  Receipt Date: 20121204
  Transmission Date: 20130627
  Serious: Yes (Other)
  Sender: FDA-Public Use
  Company Number: PHHY2012JP104266

PATIENT
  Sex: Male

DRUGS (2)
  1. EXJADE [Suspect]
     Indication: IRON OVERLOAD
     Dosage: 1000 mg, daily
     Route: 048
  2. EXJADE [Suspect]
     Dosage: 125 mg, daily
     Route: 048

REACTIONS (4)
  - Eczema [Recovered/Resolved]
  - Buccal mucosal roughening [Recovered/Resolved]
  - Rash [Unknown]
  - Pyrexia [Unknown]
